FAERS Safety Report 16748191 (Version 4)
Quarter: 2019Q4

REPORT INFORMATION
  Report Type: Report from Study
  Country: JP (occurrence: JP)
  Receive Date: 20190827
  Receipt Date: 20191105
  Transmission Date: 20200122
  Serious: Yes (Life-Threatening, Hospitalization)
  Sender: FDA-Public Use
  Company Number: PHJP2019JP002285

PATIENT
  Sex: Female

DRUGS (22)
  1. SIGNIFOR LAR [Suspect]
     Active Substance: PASIREOTIDE
     Dosage: 60 MG, UNK
     Route: 030
     Dates: start: 20170816
  2. SIGNIFOR LAR [Suspect]
     Active Substance: PASIREOTIDE
     Dosage: 60 MG, UNK
     Route: 030
     Dates: start: 20170412
  3. SIGNIFOR LAR [Suspect]
     Active Substance: PASIREOTIDE
     Dosage: 60 MG, UNK
     Route: 030
     Dates: start: 20170712
  4. SIGNIFOR LAR [Suspect]
     Active Substance: PASIREOTIDE
     Dosage: 60 MG, UNK
     Route: 030
     Dates: start: 20170913
  5. CARNACULIN [Concomitant]
     Active Substance: KALLIDINOGENASE
     Indication: ACROMEGALY
     Dosage: 150 IU, UNK
     Route: 048
  6. THYRADIN S [Concomitant]
     Active Substance: LEVOTHYROXINE SODIUM
     Indication: ACROMEGALY
     Dosage: 100 UG, UNK
     Route: 048
  7. AMARYL [Concomitant]
     Active Substance: GLIMEPIRIDE
     Indication: PROPHYLAXIS
     Dosage: 2 MG, UNK
     Route: 048
     Dates: start: 20170517
  8. TENELIA [Concomitant]
     Active Substance: TENELIGLIPTIN
     Indication: HYPERGLYCAEMIA
     Dosage: 20 MG, UNK
     Route: 048
     Dates: start: 20170412
  9. SIGNIFOR LAR [Suspect]
     Active Substance: PASIREOTIDE
     Dosage: 60 MG, UNK
     Route: 030
     Dates: start: 20170614
  10. METHYCOBAL [Concomitant]
     Active Substance: METHYLCOBALAMIN
     Indication: NEUROPATHY PERIPHERAL
     Dosage: 1500 UG, UNK
     Route: 048
  11. SIGNIFOR LAR [Suspect]
     Active Substance: PASIREOTIDE
     Dosage: 40 MG, UNK
     Route: 030
     Dates: start: 20170215
  12. SIGNIFOR LAR [Suspect]
     Active Substance: PASIREOTIDE
     Dosage: 60 MG, UNK
     Route: 030
     Dates: start: 20170315
  13. SIGNIFOR LAR [Suspect]
     Active Substance: PASIREOTIDE
     Dosage: 40 MG, UNK
     Route: 030
     Dates: start: 20170118
  14. MUCOSTA [Concomitant]
     Active Substance: REBAMIPIDE
     Indication: CHRONIC GASTRITIS
     Dosage: 300 MG, UNK
     Route: 048
  15. LIPITOR [Concomitant]
     Active Substance: ATORVASTATIN CALCIUM
     Indication: ACROMEGALY
     Dosage: 10 MG, UNK
     Route: 048
  16. SOMAVERT [Concomitant]
     Active Substance: PEGVISOMANT
     Indication: ACROMEGALY
     Dosage: 60 MG, UNK
     Route: 058
  17. JUVELA N [Concomitant]
     Active Substance: TOCOPHERYL NICOTINATE, D-.ALPHA.
     Indication: ACROMEGALY
     Dosage: 400 MG, UNK
     Route: 048
  18. AMARYL [Concomitant]
     Active Substance: GLIMEPIRIDE
     Indication: HYPERGLYCAEMIA
     Dosage: 0.5 MG, UNK
     Route: 048
     Dates: start: 20170412, end: 20170516
  19. SIGNIFOR LAR [Suspect]
     Active Substance: PASIREOTIDE
     Indication: ACROMEGALY
     Dosage: 40 MG, UNK
     Route: 030
     Dates: start: 20161214
  20. SIGNIFOR LAR [Suspect]
     Active Substance: PASIREOTIDE
     Dosage: 60 MG, UNK
     Route: 030
     Dates: start: 20170517
  21. TENELIA [Concomitant]
     Active Substance: TENELIGLIPTIN
     Indication: PROPHYLAXIS
  22. URSODEOXYCHOLIC ACID [Concomitant]
     Active Substance: URSODIOL
     Indication: HEPATIC FUNCTION ABNORMAL
     Dosage: 300 MG, UNK
     Route: 048

REACTIONS (4)
  - Altered state of consciousness [Unknown]
  - Meningitis pneumococcal [Recovered/Resolved]
  - Sepsis [Recovered/Resolved]
  - Blood glucose increased [Not Recovered/Not Resolved]

NARRATIVE: CASE EVENT DATE: 20170609
